FAERS Safety Report 6934871-1 (Version None)
Quarter: 2010Q3

REPORT INFORMATION
  Report Type: 
  Country: None (occurrence: None)
  Receive Date: 20100821
  Receipt Date: 20100806
  Transmission Date: 20110219
  Serious: Yes (Hospitalization, Other)
  Sender: FDA-Public Use
  Company Number: PHHY2010BR52133

PATIENT
  Sex: Female

DRUGS (4)
  1. DIOVAN HCT [Suspect]
     Indication: HYPERTENSION
     Dosage: ONE TABLET (160/25 MG) PER DAY
     Route: 048
     Dates: start: 20090101
  2. DIOVAN [Suspect]
  3. FORASEQ [Suspect]
     Indication: BRONCHITIS
     Dosage: 12/400 MCG
  4. AMIODARONE HYDROCHLORIDE PLUS HYDROCHLOROTHIAZIDE [Concomitant]
     Route: 048

REACTIONS (10)
  - BLOOD PRESSURE INCREASED [None]
  - DRUG DOSE OMISSION [None]
  - HEADACHE [None]
  - HYPOTENSION [None]
  - LIPOSARCOMA [None]
  - NEOPLASM [None]
  - NERVOUSNESS [None]
  - PNEUMONIA [None]
  - SURGERY [None]
  - WEIGHT INCREASED [None]
